FAERS Safety Report 10032976 (Version 2)
Quarter: 2014Q3

REPORT INFORMATION
  Report Type: Report from Study
  Country: CA (occurrence: CA)
  Receive Date: 20140324
  Receipt Date: 20140707
  Transmission Date: 20150326
  Serious: Yes (Death, Hospitalization, Other)
  Sender: FDA-Public Use
  Company Number: PHHY2014CA035156

PATIENT
  Age: 62 Year
  Sex: Male

DRUGS (39)
  1. SENNA [Concomitant]
     Active Substance: SENNA LEAF\SENNOSIDES\SENNOSIDES A AND B
     Dosage: 2 DF, DAILY
     Route: 048
  2. AMLODIPINE [Concomitant]
     Active Substance: AMLODIPINE BESYLATE
  3. DARBEPOETIN ALFA [Concomitant]
     Active Substance: DARBEPOETIN ALFA
     Dosage: 40 UG, WEDNESDAYS
     Route: 042
  4. CLOZAPINE. [Concomitant]
     Active Substance: CLOZAPINE
     Dosage: 200 MG, QHS
     Route: 048
  5. OMEGA 3//SALMON OIL [Concomitant]
     Dosage: 1 DF,  (QAM)
     Route: 048
  6. INSULIN ASPART [Concomitant]
     Active Substance: INSULIN ASPART
     Dosage: 100 U/ML, UNK
  7. CLOZARIL [Suspect]
     Active Substance: CLOZAPINE
     Indication: SCHIZOAFFECTIVE DISORDER
     Dosage: 250 MG, QHS
     Route: 048
  8. TYLENOL [Concomitant]
     Active Substance: ACETAMINOPHEN
  9. PANTOPRAZOLE [Concomitant]
     Active Substance: PANTOPRAZOLE SODIUM
     Dosage: 40 MG, BID
  10. NYSTATIN. [Concomitant]
     Active Substance: NYSTATIN
     Dosage: 50000 U, UNK
  11. THIAMINE [Concomitant]
     Active Substance: THIAMINE
     Dosage: 100 MG, DAILY (QAM)
     Route: 048
  12. CAFFEINE. [Concomitant]
     Active Substance: CAFFEINE
     Dosage: 15 MG, UNK
  13. LORAZEPAM. [Concomitant]
     Active Substance: LORAZEPAM
     Dosage: 2 MG, TID PRN
  14. LEVOTHYROXINE [Concomitant]
     Active Substance: LEVOTHYROXINE
     Dosage: 50 UG, QD
  15. CHOLECALCIFEROL [Concomitant]
     Active Substance: CHOLECALCIFEROL
     Dosage: 3000 U, DAILY
     Route: 048
  16. MTV [Concomitant]
     Dosage: 1 DF, DAILY
  17. TRAZODONE [Concomitant]
     Active Substance: TRAZODONE HYDROCHLORIDE
     Dosage: 50 MG, QHS
     Route: 048
  18. PROTON PUMP INHIBITORS [Concomitant]
     Active Substance: UNSPECIFIED INGREDIENT
     Indication: GASTRITIS
  19. ATROPINE [Concomitant]
     Active Substance: ATROPINE
  20. CLOZARIL [Suspect]
     Active Substance: CLOZAPINE
     Indication: SCHIZOPHRENIA
     Dosage: UNK MG, UNK
     Dates: start: 20121004
  21. LACTULOSE. [Concomitant]
     Active Substance: LACTULOSE
     Dosage: 30 ML, BID PRN
  22. ATORVASTATIN [Concomitant]
     Active Substance: ATORVASTATIN
     Dosage: 40 MG, QAM
  23. FERRLECIT//FERRIC SODIUM GLUCONATE COMPLEX [Concomitant]
     Dosage: 62.5 MG, QW2
  24. GLUCERNA [Concomitant]
     Active Substance: AMINO ACIDS\DEXTROSE\ELECTROLYTES NOS\SOYBEAN OIL\VITAMINS
     Dosage: 1 UNK, UNK
  25. DIMENHYDRINATE. [Concomitant]
     Active Substance: DIMENHYDRINATE
     Dosage: 25 MG, Q6H PRN
     Route: 058
  26. CODEINE [Concomitant]
     Active Substance: CODEINE
     Dosage: 30 MG, UNK
  27. MULTI-VIT [Concomitant]
     Active Substance: VITAMINS
  28. BENZTROPINE [Concomitant]
     Active Substance: BENZTROPINE
     Dosage: 2 MG, BID (HS AND AM)
     Route: 048
  29. TRAZODONE [Concomitant]
     Active Substance: TRAZODONE HYDROCHLORIDE
     Dosage: 150 MG, DAILY
     Route: 048
  30. POLYETHYLENE GLYCOL [Concomitant]
     Active Substance: POLYETHYLENE GLYCOLS
  31. CLOZARIL [Suspect]
     Active Substance: CLOZAPINE
     Dosage: 200 MG, QHS
     Route: 048
     Dates: end: 20140226
  32. OLANZAPINE. [Concomitant]
     Active Substance: OLANZAPINE
     Dosage: 6 MG, QHS
  33. OLANZAPINE. [Concomitant]
     Active Substance: OLANZAPINE
     Dosage: 5 MG, QID PRN
     Route: 048
  34. GLYCERIN. [Concomitant]
     Active Substance: GLYCERIN
     Dosage: 1 DF, QD
  35. INSULIN [Concomitant]
     Active Substance: INSULIN NOS
  36. NOVOMIX [Concomitant]
     Active Substance: INSULIN ASPART
     Dosage: 30 U, UNK (20 QAM AND 26 U QPM)
     Route: 058
  37. RANITIDINE [Concomitant]
     Active Substance: RANITIDINE\RANITIDINE HYDROCHLORIDE
     Dosage: 150 MG, (QPM)
     Route: 048
  38. APAP [Concomitant]
     Active Substance: ACETAMINOPHEN
  39. MORPHINE [Concomitant]
     Active Substance: MORPHINE
     Dosage: 1 MG, Q2H PRN
     Route: 058

REACTIONS (29)
  - Dyspnoea [Unknown]
  - Ascites [Unknown]
  - Communication disorder [Unknown]
  - Upper gastrointestinal haemorrhage [Unknown]
  - Hepatic encephalopathy [Unknown]
  - Hallucination [Unknown]
  - Confusional state [Unknown]
  - Chronic hepatic failure [Fatal]
  - Malnutrition [Unknown]
  - Mental status changes [Recovering/Resolving]
  - Agitation [Unknown]
  - Pneumonia [Unknown]
  - Cachexia [Unknown]
  - Intentional self-injury [Unknown]
  - Delusion [Unknown]
  - Hypophagia [Unknown]
  - Gastritis [Unknown]
  - Homicidal ideation [Unknown]
  - Catatonia [Recovered/Resolved]
  - Haematoma [Unknown]
  - Intestinal obstruction [Recovered/Resolved]
  - Renal failure chronic [Fatal]
  - Eating disorder [Unknown]
  - Gait disturbance [Unknown]
  - Tooth loss [Unknown]
  - Dysarthria [Unknown]
  - Fall [Unknown]
  - Oedema [Unknown]
  - Delirium [Unknown]

NARRATIVE: CASE EVENT DATE: 201401
